FAERS Safety Report 16291435 (Version 2)
Quarter: 2019Q2

REPORT INFORMATION
  Report Type: Spontaneous
  Country: US (occurrence: US)
  Receive Date: 20190509
  Receipt Date: 20190606
  Transmission Date: 20190711
  Serious: No
  Sender: FDA-Public Use
  Company Number: US-PFIZER INC-2019199220

PATIENT
  Age: 72 Year
  Sex: Female
  Weight: 76.64 kg

DRUGS (5)
  1. METOPROLOL. [Concomitant]
     Active Substance: METOPROLOL
     Indication: HYPERTENSION
     Dosage: UNK
  2. PREMARIN [Suspect]
     Active Substance: ESTROGENS, CONJUGATED
     Indication: ARTIFICIAL MENOPAUSE
     Dosage: 0.45 MG, UNK
  3. LEVOTHYROXIN [Concomitant]
     Active Substance: LEVOTHYROXINE
     Indication: THYROID DISORDER
     Dosage: UNK
  4. AMLODIPINE [Concomitant]
     Active Substance: AMLODIPINE BESYLATE
     Dosage: UNK UNK, 1X/DAY
  5. PREMARIN [Suspect]
     Active Substance: ESTROGENS, CONJUGATED
     Indication: OVARIAN FAILURE
     Dosage: 0.625 MG, UNK
     Dates: start: 1981

REACTIONS (4)
  - Drug intolerance [Unknown]
  - Night sweats [Unknown]
  - Depressed mood [Unknown]
  - Headache [Unknown]
